APPROVED DRUG PRODUCT: A-METHAPRED
Active Ingredient: METHYLPREDNISOLONE SODIUM SUCCINATE
Strength: EQ 500MG BASE/VIAL
Dosage Form/Route: INJECTABLE;INJECTION
Application: A089173 | Product #001
Applicant: HOSPIRA WORLDWIDE, INC
Approved: Aug 18, 1987 | RLD: No | RS: No | Type: DISCN